FAERS Safety Report 14539652 (Version 3)
Quarter: 2023Q4

REPORT INFORMATION
  Report Type: Spontaneous
  Country: US (occurrence: US)
  Receive Date: 20180216
  Receipt Date: 20231214
  Transmission Date: 20240110
  Serious: Yes (Other)
  Sender: FDA-Public Use
  Company Number: US-JNJFOC-20180206396

PATIENT
  Sex: Male

DRUGS (1)
  1. RISPERDAL [Suspect]
     Active Substance: RISPERIDONE
     Indication: Product used for unknown indication
     Dosage: VARYING DOSES OF 0.25, 0.5 AND 1 MG
     Route: 048
     Dates: start: 20020208, end: 20020506

REACTIONS (2)
  - Gynaecomastia [Unknown]
  - Emotional distress [Unknown]
